FAERS Safety Report 7390152-6 (Version None)
Quarter: 2011Q1

REPORT INFORMATION
  Report Type: 
  Country: None (occurrence: None)
  Receive Date: 20110324
  Receipt Date: 20110318
  Transmission Date: 20110831
  Serious: Yes (Other)
  Sender: FDA-Public Use
  Company Number: 20108340

PATIENT
  Sex: Female

DRUGS (3)
  1. DILAUDID [Concomitant]
  2. LIORESAL [Suspect]
     Indication: MUSCLE SPASTICITY
     Dosage: SEE B5 MCG, DAILY, INTRATHECAL
     Route: 037
  3. BUPIVACAINE HCL [Concomitant]

REACTIONS (5)
  - HYPOAESTHESIA [None]
  - STRESS [None]
  - DEVICE RELATED INFECTION [None]
  - BLADDER CANCER [None]
  - MYELOID LEUKAEMIA [None]
